FAERS Safety Report 7920275-1 (Version None)
Quarter: 2011Q4

REPORT INFORMATION
  Report Type: 
  Country: None (occurrence: None)
  Receive Date: 20111115
  Receipt Date: 20111103
  Transmission Date: 20120403
  Serious: Yes (Disabling)
  Sender: FDA-Public Use
  Company Number: 2011MA016275

PATIENT
  Age: 85 Year
  Sex: Male

DRUGS (5)
  1. FINASTERIDE [Suspect]
     Dates: start: 20111028
  2. MIRTAZAPINE [Concomitant]
  3. MIRTAZAPINE [Concomitant]
  4. DIGOXIN [Concomitant]
  5. AMOXICILLIN [Concomitant]

REACTIONS (1)
  - DIZZINESS [None]
